FAERS Safety Report 9301422 (Version 2)
Quarter: 2013Q2

REPORT INFORMATION
  Report Type: Spontaneous
  Country: US (occurrence: US)
  Receive Date: 20130521
  Receipt Date: 20130603
  Transmission Date: 20140414
  Serious: Yes (Death, Hospitalization)
  Sender: FDA-Public Use
  Company Number: US-BRISTOL-MYERS SQUIBB COMPANY-18905380

PATIENT
  Age: 67 Year
  Sex: Male

DRUGS (1)
  1. SPRYCEL [Suspect]
     Dosage: TAB
     Route: 048

REACTIONS (6)
  - Sepsis [Fatal]
  - Renal failure acute [Fatal]
  - Atrial fibrillation [Fatal]
  - Cardiac failure congestive [Fatal]
  - Graft versus host disease [Fatal]
  - Failure to thrive [Unknown]
